FAERS Safety Report 15324337 (Version 13)
Quarter: 2020Q2

REPORT INFORMATION
  Report Type: Report from Study
  Country: NL (occurrence: NL)
  Receive Date: 20180828
  Receipt Date: 20200622
  Transmission Date: 20200713
  Serious: Yes (Hospitalization)
  Sender: FDA-Public Use
  Company Number: NL-ROCHE-2174691

PATIENT
  Age: 70 Year
  Sex: Female
  Weight: 75 kg

DRUGS (23)
  1. FRAXODI [Concomitant]
     Active Substance: NADROPARIN CALCIUM
     Dosage: 15200 IE
     Route: 058
     Dates: start: 20180620
  2. METOCLOPRAMIDE. [Concomitant]
     Active Substance: METOCLOPRAMIDE
     Route: 048
  3. FOSTER [Concomitant]
     Active Substance: BECLOMETHASONE\FORMOTEROL
     Indication: COUGH
     Dosage: 100/6 UG
     Route: 050
     Dates: start: 20180612
  4. ATROVENT [Concomitant]
     Active Substance: IPRATROPIUM BROMIDE
     Indication: DYSPNOEA
     Route: 050
     Dates: start: 20180627
  5. TAVEGYL [Concomitant]
     Active Substance: CLEMASTINE FUMARATE
     Indication: PYREXIA
     Route: 048
     Dates: start: 20180424, end: 20180424
  6. PARACETAMOL [Concomitant]
     Active Substance: ACETAMINOPHEN
     Indication: PYREXIA
     Route: 042
     Dates: start: 20180824
  7. CODEINE [Concomitant]
     Active Substance: CODEINE
     Route: 048
  8. SALBUTAMOL [Concomitant]
     Active Substance: ALBUTEROL
     Indication: DYSPNOEA
     Route: 050
     Dates: start: 20180604
  9. NACL [Concomitant]
     Active Substance: SODIUM CHLORIDE
     Indication: RENAL FAILURE
     Dosage: SOLUTION
     Route: 042
     Dates: start: 20180514, end: 20180514
  10. NACL [Concomitant]
     Active Substance: SODIUM CHLORIDE
     Dosage: FOR EVERY ADMINISTRATION
     Route: 042
     Dates: start: 20180522
  11. PARACETAMOL [Concomitant]
     Active Substance: ACETAMINOPHEN
     Indication: PROPHYLAXIS
     Dosage: PILL
     Route: 054
     Dates: start: 20180625
  12. SIMVASTATIN. [Concomitant]
     Active Substance: SIMVASTATIN
     Route: 048
     Dates: start: 20180624
  13. FLUIMUCIL [Concomitant]
     Active Substance: ACETYLCYSTEINE
     Indication: COUGH
     Route: 048
     Dates: start: 20180612
  14. OXYCODON [Concomitant]
     Active Substance: OXYCODONE
     Indication: DISEASE PROGRESSION
     Dosage: DELAYED RELEASE
     Route: 048
     Dates: start: 20180825
  15. PARACETAMOL [Concomitant]
     Active Substance: ACETAMINOPHEN
     Indication: NAUSEA
     Route: 048
     Dates: start: 20180424, end: 20180424
  16. IPRATROPIUM BROMIDE. [Concomitant]
     Active Substance: IPRATROPIUM BROMIDE
     Indication: DYSPNOEA
     Dosage: INHALANT
     Route: 065
     Dates: start: 20180627
  17. IPRAMOL [Concomitant]
     Active Substance: ALBUTEROL SULFATE\IPRATROPIUM BROMIDE
     Indication: DYSPNOEA
     Dosage: INHALANT
     Route: 065
     Dates: start: 20180627
  18. OXAZEPAM. [Concomitant]
     Active Substance: OXAZEPAM
     Route: 048
  19. TAVEGYL [Concomitant]
     Active Substance: CLEMASTINE FUMARATE
     Indication: NAUSEA
     Route: 048
     Dates: start: 20180522
  20. MOVICOLON [Concomitant]
     Active Substance: POLYETHYLENE GLYCOL 3350\POTASSIUM CHLORIDE\SODIUM BICARBONATE\SODIUM CHLORIDE
     Route: 048
     Dates: start: 20180620
  21. AMOXICILLINE/CLAVULAANZUUR [Concomitant]
     Active Substance: AMOXICILLIN\CLAVULANATE POTASSIUM
     Route: 048
     Dates: start: 20180620, end: 20180625
  22. ATEZOLIZUMAB. [Suspect]
     Active Substance: ATEZOLIZUMAB
     Indication: NON-SMALL CELL LUNG CANCER METASTATIC
     Dosage: DATE OF MOST RECENT DOSE OF ATEZOLIZUMAB PRIOR TO SAE ONSET: 31/JUL/2018 AT 12:04
     Route: 041
     Dates: start: 20180424
  23. ATROVENT [Concomitant]
     Active Substance: IPRATROPIUM BROMIDE
     Route: 050
     Dates: start: 20180723

REACTIONS (1)
  - Nephropathy toxic [Not Recovered/Not Resolved]

NARRATIVE: CASE EVENT DATE: 20180820
